FAERS Safety Report 12312005 (Version 1)
Quarter: 2016Q2

REPORT INFORMATION
  Report Type: Spontaneous
  Country: FR (occurrence: FR)
  Receive Date: 20160427
  Receipt Date: 20160427
  Transmission Date: 20160815
  Serious: Yes (Other)
  Sender: FDA-Public Use
  Company Number: FR-ABBVIE-16P-056-1614981-00

PATIENT
  Sex: Male

DRUGS (1)
  1. DEPAKINE CHRONO [Suspect]
     Active Substance: VALPROATE SODIUM
     Indication: MATERNAL EXPOSURE TIMING UNSPECIFIED
     Route: 064

REACTIONS (14)
  - Foetal exposure during pregnancy [Unknown]
  - Abnormal behaviour [Unknown]
  - Nasal obstruction [Unknown]
  - Fine motor skill dysfunction [Unknown]
  - Tonsillar hypertrophy [Unknown]
  - Eczema [Unknown]
  - Aggression [Unknown]
  - Phobia [Unknown]
  - Separation anxiety disorder [Recovering/Resolving]
  - Autism [Not Recovered/Not Resolved]
  - House dust allergy [Unknown]
  - Intracranial mass [Unknown]
  - Asthma [Unknown]
  - Tic [Unknown]
